FAERS Safety Report 5557872-7 (Version None)
Quarter: 2007Q4

REPORT INFORMATION
  Report Type: 
  Country: None (occurrence: None)
  Receive Date: 20071214
  Receipt Date: 20071127
  Transmission Date: 20080405
  Serious: Yes (Hospitalization)
  Sender: FDA-Public Use
  Company Number: DE-BAYER-DE-2007-036725

PATIENT
  Age: 51 Year
  Sex: Female
  Weight: 73 kg

DRUGS (2)
  1. BETASERON [Suspect]
     Route: 058
     Dates: start: 20010101, end: 20070925
  2. BETASERON [Suspect]
     Route: 058
     Dates: start: 20070926, end: 20070927

REACTIONS (4)
  - BLISTER [None]
  - EXCORIATION [None]
  - PEMPHIGOID [None]
  - URTICARIA [None]
